FAERS Safety Report 7026531-6 (Version None)
Quarter: 2010Q4

REPORT INFORMATION
  Report Type: 
  Country: None (occurrence: None)
  Receive Date: 20101004
  Receipt Date: 20100923
  Transmission Date: 20110411
  Serious: Yes (Other)
  Sender: FDA-Public Use
  Company Number: CA-JNJFOC-20100907750

PATIENT
  Sex: Female
  Weight: 47.7 kg

DRUGS (13)
  1. REMICADE [Suspect]
     Indication: CROHN'S DISEASE
     Dosage: A TOTAL OF 17 INFUSIONS
     Route: 042
  2. PONALID [Concomitant]
  3. TRIAZIDE [Concomitant]
  4. APO-NIFED [Concomitant]
  5. ZOPICLONE [Concomitant]
  6. QUININE [Concomitant]
  7. AMIDRYL [Concomitant]
  8. TYLENOL [Concomitant]
  9. FOLIC ACID [Concomitant]
  10. POTASSIUM [Concomitant]
  11. MAGNESIUM [Concomitant]
  12. METHOTREXATE [Concomitant]
  13. ACTIVASE [Concomitant]

REACTIONS (3)
  - ASTHENIA [None]
  - BALANCE DISORDER [None]
  - FALL [None]
